FAERS Safety Report 7776644-6 (Version None)
Quarter: 2011Q3

REPORT INFORMATION
  Report Type: 
  Country: None (occurrence: None)
  Receive Date: 20110922
  Receipt Date: 20110922
  Transmission Date: 20111222
  Serious: Yes (Hospitalization, Disabling, Other)
  Sender: FDA-Public Use
  Company Number: None

PATIENT
  Sex: Female
  Weight: 105.5 kg

DRUGS (2)
  1. LIDOCAINE [Suspect]
     Indication: ARTHRALGIA
     Dosage: X1 DOSE INTRA-ARTICULAR
     Route: 014
     Dates: start: 20110901
  2. KENALOG [Suspect]
     Indication: ARTHRALGIA
     Dosage: X1 DOSE INTRA-ARTICULAR
     Route: 014
     Dates: start: 20110901

REACTIONS (11)
  - TENDERNESS [None]
  - DISORIENTATION [None]
  - FEELING ABNORMAL [None]
  - PAIN IN EXTREMITY [None]
  - MENTAL DISORDER [None]
  - IMPAIRED DRIVING ABILITY [None]
  - CONFUSIONAL STATE [None]
  - ANXIETY [None]
  - PAIN [None]
  - POOR QUALITY SLEEP [None]
  - ERYTHEMA [None]
